FAERS Safety Report 7758644-5 (Version None)
Quarter: 2011Q3

REPORT INFORMATION
  Report Type: 
  Country: None (occurrence: None)
  Receive Date: 20110825
  Receipt Date: 20110426
  Transmission Date: 20111222
  Serious: Yes (Hospitalization)
  Sender: FDA-Public Use
  Company Number: 322932

PATIENT
  Age: 60 Year
  Sex: Male
  Weight: 90.2 kg

DRUGS (9)
  1. CELEBREX [Concomitant]
  2. LISINOPRIL [Concomitant]
  3. OMEGA 3 /01334101/ (FISH OIL) [Concomitant]
  4. VICTOZA [Suspect]
     Indication: TYPE 2 DIABETES MELLITUS
     Dosage: 1.2 MG, QD, SUBCUTANEOUS
     Route: 058
     Dates: start: 20100416, end: 20110129
  5. MULTIVITAMIN /00097801/ (ASCORBIC ACID, CALCIUM PANTOTHENATE, ERGOCALC [Concomitant]
  6. ZYLOPRIM [Concomitant]
  7. SERZONE [Concomitant]
  8. ASPIRIN [Concomitant]
  9. HYDROCHLOROTHIAZIDE [Concomitant]

REACTIONS (1)
  - PANCREATITIS [None]
